FAERS Safety Report 5672750-0 (Version None)
Quarter: 2008Q1

REPORT INFORMATION
  Report Type: 
  Country: None (occurrence: None)
  Receive Date: 20080319
  Receipt Date: 20071115
  Transmission Date: 20080703
  Serious: No
  Sender: FDA-Public Use
  Company Number: US-KINGPHARMUSA00001-K200701474

PATIENT

DRUGS (8)
  1. ALTACE [Suspect]
     Indication: LOW CARDIAC OUTPUT SYNDROME
     Dosage: 2.5 MG, QD
     Route: 048
     Dates: start: 20071101, end: 20071101
  2. ALTACE [Suspect]
     Dosage: UNK, UNK
     Dates: start: 20071115
  3. PLAVIX [Concomitant]
  4. ASPIRIN [Concomitant]
  5. UNSPECIFIED SUPPLEMENTS [Concomitant]
  6. COLCHICINE [Concomitant]
  7. FLOMAX  /00889901/ [Concomitant]
  8. PEPCID [Concomitant]
     Indication: LOW CARDIAC OUTPUT SYNDROME
     Dosage: 20 MG, BID

REACTIONS (2)
  - ABDOMINAL PAIN UPPER [None]
  - FATIGUE [None]
